FAERS Safety Report 11388874 (Version 2)
Quarter: 2017Q1

REPORT INFORMATION
  Report Type: Spontaneous
  Country: US (occurrence: US)
  Receive Date: 20150811
  Receipt Date: 20170127
  Transmission Date: 20170428
  Serious: Yes (Other)
  Sender: FDA-Public Use
  Company Number: US-APOTEX-2015AP008322

PATIENT

DRUGS (3)
  1. PAXIL CR [Suspect]
     Active Substance: PAROXETINE HYDROCHLORIDE
     Dosage: 12.5 MG, UNK
     Route: 064
     Dates: start: 20110627
  2. PAXIL [Suspect]
     Active Substance: PAROXETINE HYDROCHLORIDE
     Indication: PRODUCT USED FOR UNKNOWN INDICATION
     Route: 064
  3. PAXIL CR [Suspect]
     Active Substance: PAROXETINE HYDROCHLORIDE
     Indication: BIPOLAR DISORDER
     Dosage: 25 MG, UNK
     Route: 064

REACTIONS (3)
  - Autism spectrum disorder [Unknown]
  - Autism [Unknown]
  - Foetal exposure during pregnancy [Unknown]
